FAERS Safety Report 7792657-2 (Version None)
Quarter: 2011Q4

REPORT INFORMATION
  Report Type: 
  Country: None (occurrence: None)
  Receive Date: 20111003
  Receipt Date: 20110926
  Transmission Date: 20120403
  Serious: Yes (Hospitalization)
  Sender: FDA-Public Use
  Company Number: JP-SANOFI-AVENTIS-2011SA056411

PATIENT
  Age: 65 Year
  Sex: Female
  Weight: 45.7 kg

DRUGS (13)
  1. ENOXAPARIN SODIUM [Suspect]
     Indication: COLON CANCER
     Route: 058
     Dates: start: 20110804, end: 20110807
  2. ALL OTHER THERAPEUTIC PRODUCTS [Concomitant]
     Indication: INFUSION
     Dates: start: 20110804, end: 20110810
  3. PROSTARMON F [Concomitant]
     Dates: start: 20110804, end: 20110810
  4. HEPARIN SODIUM [Suspect]
     Indication: PROPHYLAXIS
     Dosage: DOSE:1000 UNIT(S)
     Route: 042
     Dates: start: 20110730, end: 20110801
  5. FAMOTIDINE [Concomitant]
     Indication: PROPHYLAXIS
     Dates: start: 20110804, end: 20110808
  6. RESTAMIN [Concomitant]
     Indication: RASH
     Dates: start: 20110804
  7. VOLTAREN [Concomitant]
     Dates: start: 20110804, end: 20110804
  8. VEEN D [Concomitant]
     Indication: INFUSION
     Dates: start: 20110804, end: 20110809
  9. ALL OTHER THERAPEUTIC PRODUCTS [Concomitant]
     Indication: INFECTION PROPHYLAXIS
     Dates: start: 20110803, end: 20110807
  10. ACTIT [Concomitant]
     Indication: INFUSION
     Dates: start: 20110803, end: 20110819
  11. HEPARIN SODIUM [Suspect]
     Dosage: DOSE:1000 UNIT(S)
     Route: 042
     Dates: start: 20110805, end: 20110806
  12. TULOBUTEROL [Concomitant]
     Indication: PROPHYLAXIS
     Route: 062
     Dates: start: 20110804
  13. ENOXAPARIN SODIUM [Suspect]
     Route: 058
     Dates: start: 20110804, end: 20110807

REACTIONS (2)
  - COAGULOPATHY [None]
  - THROMBOCYTOPENIA [None]
